FAERS Safety Report 5826297-9 (Version None)
Quarter: 2008Q3

REPORT INFORMATION
  Report Type: 
  Country: None (occurrence: None)
  Receive Date: 20080729
  Receipt Date: 20080717
  Transmission Date: 20090109
  Serious: Yes (Death, Hospitalization)
  Sender: FDA-Public Use
  Company Number: JP-PFIZER INC-2008059900

PATIENT
  Sex: Male
  Weight: 44 kg

DRUGS (10)
  1. VFEND [Suspect]
     Indication: BRONCHOPULMONARY ASPERGILLOSIS
     Dosage: DAILY DOSE:200MG
     Route: 042
     Dates: start: 20080104, end: 20080203
  2. VFEND [Suspect]
     Route: 042
     Dates: start: 20080708, end: 20080709
  3. VFEND [Suspect]
     Route: 013
  4. VFEND [Suspect]
     Indication: BRONCHOPULMONARY ASPERGILLOSIS
     Route: 048
     Dates: start: 20080204, end: 20080707
  5. LENDORMIN [Suspect]
     Dosage: DAILY DOSE:.25MG
     Route: 048
  6. MYSLEE [Suspect]
     Dosage: DAILY DOSE:5MG
     Route: 048
  7. AMBISOME [Concomitant]
     Dosage: DAILY DOSE:150MG
     Route: 042
     Dates: start: 20080529, end: 20080605
  8. AMBISOME [Concomitant]
     Dosage: DAILY DOSE:150MG
  9. LOXONIN [Concomitant]
     Dosage: TEXT:2 TABLETS
     Route: 048
  10. SELBEX [Concomitant]
     Dosage: TEXT:2 TABLETS
     Route: 048

REACTIONS (2)
  - BRONCHOPULMONARY ASPERGILLOSIS [None]
  - HYPOGLYCAEMIA [None]
